FAERS Safety Report 6439432-9 (Version None)
Quarter: 2009Q4

REPORT INFORMATION
  Report Type: 
  Country: None (occurrence: None)
  Receive Date: 20091113
  Receipt Date: 20091106
  Transmission Date: 20100525
  Serious: No
  Sender: FDA-Public Use
  Company Number: JP-BAYER-200912975BYL

PATIENT
  Age: 70 Year
  Sex: Male

DRUGS (8)
  1. NEXAVAR [Suspect]
     Indication: HEPATIC NEOPLASM MALIGNANT
     Dosage: TOTAL DAILY DOSE: 800 MG  UNIT DOSE: 200 MG
     Route: 048
     Dates: start: 20090722, end: 20090804
  2. LIVACT [Concomitant]
     Indication: HYPOALBUMINAEMIA
     Route: 048
     Dates: start: 20090526
  3. POSTERISAN [Concomitant]
     Route: 061
     Dates: start: 20090724
  4. NIZORAL [Concomitant]
     Route: 061
     Dates: start: 20090724
  5. PETROLATUM SALICYLATE [Concomitant]
     Indication: PROPHYLAXIS
     Route: 061
     Dates: start: 20090724, end: 20090803
  6. UREPEARL [Concomitant]
     Indication: PROPHYLAXIS
     Route: 061
     Dates: start: 20090724, end: 20090803
  7. PROPETO [Concomitant]
     Indication: DRY SKIN PROPHYLAXIS
     Route: 061
     Dates: start: 20090724
  8. LUPRAC [Concomitant]
     Route: 048
     Dates: start: 20090818

REACTIONS (4)
  - COUGH [None]
  - HYPERTENSION [None]
  - PALMAR-PLANTAR ERYTHRODYSAESTHESIA SYNDROME [None]
  - PYREXIA [None]
